FAERS Safety Report 17976743 (Version 1)
Quarter: 2020Q3

REPORT INFORMATION
  Report Type: Spontaneous
  Country: DE (occurrence: DE)
  Receive Date: 20200703
  Receipt Date: 20200703
  Transmission Date: 20201103
  Serious: Yes (Other)
  Sender: FDA-Public Use
  Company Number: DE-AUROBINDO-AUR-APL-2020-031850

PATIENT
  Age: 1 Day
  Sex: Male
  Weight: 4.23 kg

DRUGS (2)
  1. FOLSAEURE [Concomitant]
     Active Substance: FOLIC ACID
     Indication: PROPHYLAXIS OF NEURAL TUBE DEFECT
     Dosage: UNK
     Route: 064
     Dates: start: 20190227, end: 20190423
  2. ARIPIPRAZOLE. [Suspect]
     Active Substance: ARIPIPRAZOLE
     Indication: PRODUCT USED FOR UNKNOWN INDICATION
     Dosage: 10 MILLIGRAM PER DECILITRE, ONCE A DAY
     Route: 064
     Dates: start: 20190227, end: 20191210

REACTIONS (2)
  - Foetal exposure during pregnancy [Unknown]
  - Large for dates baby [Recovered/Resolved]

NARRATIVE: CASE EVENT DATE: 20191210
